FAERS Safety Report 21408248 (Version 1)
Quarter: 2022Q4

REPORT INFORMATION
  Report Type: Spontaneous
  Country: CA (occurrence: CA)
  Receive Date: 20221004
  Receipt Date: 20221004
  Transmission Date: 20230113
  Serious: Yes (Other)
  Sender: FDA-Public Use
  Company Number: CA-SAMSUNG BIOEPIS-SB-2022-24671

PATIENT
  Age: 70 Year
  Sex: Female

DRUGS (2)
  1. INFLIXIMAB [Suspect]
     Active Substance: INFLIXIMAB
     Indication: Crohn^s disease
     Route: 042
  2. PREDNISONE [Concomitant]
     Active Substance: PREDNISONE
     Indication: Product used for unknown indication
     Route: 048

REACTIONS (9)
  - Cellulitis [Unknown]
  - Condition aggravated [Unknown]
  - Endometriosis [Unknown]
  - Erythema [Unknown]
  - Hypertension [Unknown]
  - Nephrolithiasis [Unknown]
  - Ocular hyperaemia [Unknown]
  - Psoriasis [Unknown]
  - Off label use [Unknown]
